FAERS Safety Report 18040719 (Version 2)
Quarter: 2020Q4

REPORT INFORMATION
  Report Type: Report from Study
  Country: TH (occurrence: TH)
  Receive Date: 20200717
  Receipt Date: 20201204
  Transmission Date: 20210113
  Serious: Yes (Death, Hospitalization)
  Sender: FDA-Public Use
  Company Number: NVSC2020TH199690

PATIENT
  Sex: Female

DRUGS (1)
  1. KISQALI [Suspect]
     Active Substance: RIBOCICLIB
     Indication: BREAST CANCER METASTATIC
     Dosage: 3 DF, QD (3 TABS/DAY)
     Route: 048

REACTIONS (8)
  - Drug hypersensitivity [Unknown]
  - Dyspnoea [Recovered/Resolved]
  - Epistaxis [Unknown]
  - Vomiting [Unknown]
  - Eye oedema [Recovering/Resolving]
  - Oedema peripheral [Recovering/Resolving]
  - Neoplasm malignant [Fatal]
  - Blood test abnormal [Unknown]
